FAERS Safety Report 25497229 (Version 2)
Quarter: 2025Q3

REPORT INFORMATION
  Report Type: Spontaneous
  Country: CA (occurrence: CA)
  Receive Date: 20250701
  Receipt Date: 20250802
  Transmission Date: 20251020
  Serious: Yes (Other)
  Sender: ALEXION PHARMACEUTICALS
  Company Number: CA-ASTRAZENECA-202506GLO024371CA

PATIENT
  Age: 41 Year
  Sex: Female

DRUGS (134)
  1. NEXIUM [Suspect]
     Active Substance: ESOMEPRAZOLE MAGNESIUM
     Indication: Migraine
  2. ACETAMINOPHEN [Concomitant]
     Active Substance: ACETAMINOPHEN
     Indication: Product used for unknown indication
     Route: 065
  3. ACETAMINOPHEN [Suspect]
     Active Substance: ACETAMINOPHEN
     Indication: Product used for unknown indication
     Route: 065
  4. AMOXICILLIN [Suspect]
     Active Substance: AMOXICILLIN
     Indication: Product used for unknown indication
  5. AMOXICILLIN [Suspect]
     Active Substance: AMOXICILLIN
  6. BOTULINUM TOXIN TYPE A [Suspect]
     Active Substance: BOTULINUM TOXIN TYPE A
     Indication: Product used for unknown indication
     Route: 065
  7. CIPROFLOXACIN [Suspect]
     Active Substance: CIPROFLOXACIN
     Indication: Product used for unknown indication
     Route: 065
  8. CIPROFLOXACIN [Suspect]
     Active Substance: CIPROFLOXACIN
     Indication: Migraine
  9. CIPROFLOXACIN [Suspect]
     Active Substance: CIPROFLOXACIN
  10. CODEINE [Suspect]
     Active Substance: CODEINE
     Indication: Migraine
  11. DANAZOL [Concomitant]
     Active Substance: DANAZOL
     Indication: Product used for unknown indication
     Route: 065
  12. CYMBALTA [Concomitant]
     Active Substance: DULOXETINE HYDROCHLORIDE
     Indication: Product used for unknown indication
  13. DEXAMETHASONE [Suspect]
     Active Substance: DEXAMETHASONE
     Indication: Migraine
  14. DEXAMETHASONE [Suspect]
     Active Substance: DEXAMETHASONE
  15. DULOXETINE HYDROCHLORIDE [Suspect]
     Active Substance: DULOXETINE HYDROCHLORIDE
     Indication: Migraine
     Route: 065
  16. ESCITALOPRAM [Suspect]
     Active Substance: ESCITALOPRAM OXALATE
     Indication: Migraine
     Route: 065
  17. FERROUS FUMARATE [Concomitant]
     Active Substance: FERROUS FUMARATE
     Indication: Product used for unknown indication
     Route: 065
  18. FLUCONAZOLE [Suspect]
     Active Substance: FLUCONAZOLE
     Indication: Migraine
     Route: 065
  19. HYDROMORPHONE [Suspect]
     Active Substance: HYDROMORPHONE
     Indication: Migraine
     Route: 065
  20. HYDROMORPHONE [Suspect]
     Active Substance: HYDROMORPHONE
  21. HYDROMORPHONE [Suspect]
     Active Substance: HYDROMORPHONE
  22. HYDROMORPHONE [Suspect]
     Active Substance: HYDROMORPHONE
  23. HYDROMORPHONE [Suspect]
     Active Substance: HYDROMORPHONE
  24. HYDROMORPHONE [Suspect]
     Active Substance: HYDROMORPHONE
  25. HYDROMORPHONE [Suspect]
     Active Substance: HYDROMORPHONE
  26. HYDROMORPHONE [Suspect]
     Active Substance: HYDROMORPHONE
  27. HYDROMORPHONE [Suspect]
     Active Substance: HYDROMORPHONE
  28. HYDROMORPHONE [Suspect]
     Active Substance: HYDROMORPHONE
  29. HYDROMORPHONE [Suspect]
     Active Substance: HYDROMORPHONE
  30. INDOMETHACIN SODIUM [Suspect]
     Active Substance: INDOMETHACIN SODIUM
     Indication: Product used for unknown indication
     Route: 065
  31. INDOMETHACIN SODIUM [Suspect]
     Active Substance: INDOMETHACIN SODIUM
  32. INDOMETHACIN SODIUM [Suspect]
     Active Substance: INDOMETHACIN SODIUM
  33. INDOMETHACIN SODIUM [Suspect]
     Active Substance: INDOMETHACIN SODIUM
  34. INDOMETHACIN SODIUM [Suspect]
     Active Substance: INDOMETHACIN SODIUM
  35. INDOMETHACIN SODIUM [Suspect]
     Active Substance: INDOMETHACIN SODIUM
  36. INDOMETHACIN SODIUM [Suspect]
     Active Substance: INDOMETHACIN SODIUM
  37. INDOMETHACIN SODIUM [Suspect]
     Active Substance: INDOMETHACIN SODIUM
  38. INDOMETHACIN SODIUM [Suspect]
     Active Substance: INDOMETHACIN SODIUM
  39. INDOMETHACIN SODIUM [Suspect]
     Active Substance: INDOMETHACIN SODIUM
  40. INDOMETHACIN SODIUM [Suspect]
     Active Substance: INDOMETHACIN SODIUM
  41. INDOMETHACIN SODIUM [Suspect]
     Active Substance: INDOMETHACIN SODIUM
  42. INDOMETHACIN SODIUM [Suspect]
     Active Substance: INDOMETHACIN SODIUM
  43. INDOMETHACIN SODIUM [Suspect]
     Active Substance: INDOMETHACIN SODIUM
  44. INDOMETHACIN SODIUM [Suspect]
     Active Substance: INDOMETHACIN SODIUM
  45. INDOMETHACIN SODIUM [Suspect]
     Active Substance: INDOMETHACIN SODIUM
  46. INDOMETHACIN SODIUM [Suspect]
     Active Substance: INDOMETHACIN SODIUM
  47. INDOMETHACIN SODIUM [Suspect]
     Active Substance: INDOMETHACIN SODIUM
  48. INDOMETHACIN SODIUM [Suspect]
     Active Substance: INDOMETHACIN SODIUM
  49. INDOMETHACIN SODIUM [Suspect]
     Active Substance: INDOMETHACIN SODIUM
  50. INDOMETHACIN SODIUM [Suspect]
     Active Substance: INDOMETHACIN SODIUM
  51. INDOMETHACIN SODIUM [Suspect]
     Active Substance: INDOMETHACIN SODIUM
  52. INDOMETHACIN SODIUM [Suspect]
     Active Substance: INDOMETHACIN SODIUM
  53. INDOMETHACIN SODIUM [Suspect]
     Active Substance: INDOMETHACIN SODIUM
  54. LANSOPRAZOLE [Suspect]
     Active Substance: LANSOPRAZOLE
     Indication: Migraine
     Route: 065
  55. POLYETHYLENE GLYCOL 3350 [Concomitant]
     Active Substance: POLYETHYLENE GLYCOL 3350
     Indication: Product used for unknown indication
  56. METOCLOPRAMIDE [Suspect]
     Active Substance: METOCLOPRAMIDE
     Indication: Migraine
  57. METOCLOPRAMIDE [Concomitant]
     Active Substance: METOCLOPRAMIDE
     Indication: Product used for unknown indication
  58. MOMETASONE FUROATE [Concomitant]
     Active Substance: MOMETASONE FUROATE
     Indication: Product used for unknown indication
     Route: 065
  59. NAPROXEN [Concomitant]
     Active Substance: NAPROXEN
     Indication: Product used for unknown indication
  60. OSELTAMIVIR [Concomitant]
     Active Substance: OSELTAMIVIR
     Indication: Product used for unknown indication
  61. PANTOPRAZOLE [Concomitant]
     Active Substance: PANTOPRAZOLE
     Indication: Product used for unknown indication
  62. AZITHROMYCIN [Suspect]
     Active Substance: AZITHROMYCIN
     Indication: Product used for unknown indication
  63. AZITHROMYCIN [Suspect]
     Active Substance: AZITHROMYCIN
     Indication: Migraine
  64. PREDNISONE [Suspect]
     Active Substance: PREDNISONE
     Indication: Product used for unknown indication
     Route: 065
  65. ALBUTEROL [Suspect]
     Active Substance: ALBUTEROL
     Indication: Product used for unknown indication
     Route: 065
  66. ALBUTEROL [Suspect]
     Active Substance: ALBUTEROL
     Route: 065
  67. SUMATRIPTAN [Suspect]
     Active Substance: SUMATRIPTAN
     Indication: Migraine
     Route: 065
  68. TRAMADOL HYDROCHLORIDE [Suspect]
     Active Substance: TRAMADOL HYDROCHLORIDE
     Indication: Product used for unknown indication
     Route: 065
  69. CEFUROXIME [Concomitant]
     Active Substance: CEFUROXIME
     Indication: Product used for unknown indication
     Route: 065
  70. CEPHALEXIN [Concomitant]
     Active Substance: CEPHALEXIN
     Indication: Product used for unknown indication
     Route: 065
  71. CLARITHROMYCIN [Suspect]
     Active Substance: CLARITHROMYCIN
     Indication: Product used for unknown indication
     Route: 065
  72. FLUOXETINE [Concomitant]
     Active Substance: FLUOXETINE HYDROCHLORIDE
     Indication: Product used for unknown indication
  73. FLUTICASONE [Concomitant]
     Active Substance: FLUTICASONE
     Indication: Product used for unknown indication
  74. FROVATRIPTAN [Concomitant]
     Active Substance: FROVATRIPTAN
     Indication: Product used for unknown indication
  75. SCOPOLAMINE [Suspect]
     Active Substance: SCOPOLAMINE
     Indication: Migraine
     Route: 065
  76. LISINOPRIL [Suspect]
     Active Substance: LISINOPRIL
     Route: 065
  77. LISINOPRIL [Suspect]
     Active Substance: LISINOPRIL
     Dosage: 1 DOSAGE FORM, QD
     Route: 065
  78. MACROBID [Concomitant]
     Active Substance: NITROFURANTOIN\NITROFURANTOIN MONOHYDRATE
     Indication: Product used for unknown indication
     Route: 065
  79. METOCLOPRAMIDE [Suspect]
     Active Substance: METOCLOPRAMIDE
     Indication: Migraine
  80. METRONIDAZOLE [Concomitant]
     Active Substance: METRONIDAZOLE
     Indication: Product used for unknown indication
  81. MOMETASONE FUROATE [Suspect]
     Active Substance: MOMETASONE FUROATE
     Indication: Migraine
  82. MOMETASONE FUROATE [Suspect]
     Active Substance: MOMETASONE FUROATE
  83. MOMETASONE FUROATE [Suspect]
     Active Substance: MOMETASONE FUROATE
  84. MORPHINE SULFATE [Concomitant]
     Active Substance: MORPHINE SULFATE
     Indication: Product used for unknown indication
  85. PROPRANOLOL [Suspect]
     Active Substance: PROPRANOLOL HYDROCHLORIDE
     Indication: Migraine
     Route: 065
  86. RABEPRAZOLE [Suspect]
     Active Substance: RABEPRAZOLE
     Indication: Migraine
     Route: 065
  87. RABEPRAZOLE [Suspect]
     Active Substance: RABEPRAZOLE
  88. RABEPRAZOLE [Suspect]
     Active Substance: RABEPRAZOLE
  89. RABEPRAZOLE [Suspect]
     Active Substance: RABEPRAZOLE
  90. RABEPRAZOLE [Suspect]
     Active Substance: RABEPRAZOLE
  91. RABEPRAZOLE [Suspect]
     Active Substance: RABEPRAZOLE
  92. RABEPRAZOLE [Suspect]
     Active Substance: RABEPRAZOLE
  93. RABEPRAZOLE [Suspect]
     Active Substance: RABEPRAZOLE
  94. RABEPRAZOLE [Suspect]
     Active Substance: RABEPRAZOLE
  95. RABEPRAZOLE [Suspect]
     Active Substance: RABEPRAZOLE
  96. RABEPRAZOLE [Suspect]
     Active Substance: RABEPRAZOLE
  97. RABEPRAZOLE [Suspect]
     Active Substance: RABEPRAZOLE
  98. RABEPRAZOLE [Suspect]
     Active Substance: RABEPRAZOLE
  99. RABEPRAZOLE [Suspect]
     Active Substance: RABEPRAZOLE
  100. RABEPRAZOLE [Suspect]
     Active Substance: RABEPRAZOLE
  101. RABEPRAZOLE [Suspect]
     Active Substance: RABEPRAZOLE
  102. RABEPRAZOLE [Suspect]
     Active Substance: RABEPRAZOLE
  103. RABEPRAZOLE [Suspect]
     Active Substance: RABEPRAZOLE
  104. RABEPRAZOLE [Suspect]
     Active Substance: RABEPRAZOLE
  105. RIZATRIPTAN [Suspect]
     Active Substance: RIZATRIPTAN
     Indication: Migraine
     Route: 065
  106. SERTRALINE [Suspect]
     Active Substance: SERTRALINE HYDROCHLORIDE
     Indication: Migraine
     Route: 065
  107. SULFAMETHOXAZOLE\TRIMETHOPRIM [Suspect]
     Active Substance: SULFAMETHOXAZOLE\TRIMETHOPRIM
     Indication: Product used for unknown indication
  108. TOPAMAX [Suspect]
     Active Substance: TOPIRAMATE
     Indication: Migraine
     Route: 065
  109. TRIMETHOPRIM [Suspect]
     Active Substance: TRIMETHOPRIM
     Indication: Product used for unknown indication
     Route: 065
  110. ZOLMITRIPTAN [Suspect]
     Active Substance: ZOLMITRIPTAN
     Indication: Product used for unknown indication
  111. ZOPICLONE [Suspect]
     Active Substance: ZOPICLONE
     Indication: Migraine
     Route: 065
  112. ZOPICLONE [Suspect]
     Active Substance: ZOPICLONE
     Dosage: 1 DOSAGE FORM, QD
     Route: 065
  113. ZOPICLONE [Suspect]
     Active Substance: ZOPICLONE
     Dosage: 1 DOSAGE FORM, QD
     Route: 065
  114. ZOPICLONE [Suspect]
     Active Substance: ZOPICLONE
     Dosage: 1 DOSAGE FORM, QD
     Route: 065
  115. ZOPICLONE [Suspect]
     Active Substance: ZOPICLONE
     Dosage: 1 DOSAGE FORM, QD
     Route: 065
  116. ZOPICLONE [Suspect]
     Active Substance: ZOPICLONE
     Dosage: 1 DOSAGE FORM, QD
     Route: 065
  117. ZOPICLONE [Suspect]
     Active Substance: ZOPICLONE
     Dosage: 1 DOSAGE FORM, QD
     Route: 065
  118. ZOPICLONE [Suspect]
     Active Substance: ZOPICLONE
     Dosage: 1 DOSAGE FORM, QD
     Route: 065
  119. ZOPICLONE [Suspect]
     Active Substance: ZOPICLONE
     Dosage: 1 DOSAGE FORM, QD
     Route: 065
  120. ZOPICLONE [Suspect]
     Active Substance: ZOPICLONE
     Dosage: 1 DOSAGE FORM, QD
     Route: 065
  121. ZOPICLONE [Suspect]
     Active Substance: ZOPICLONE
     Dosage: 1 DOSAGE FORM, QD
     Route: 065
  122. ZOPICLONE [Suspect]
     Active Substance: ZOPICLONE
     Dosage: 1 DOSAGE FORM, QD
     Route: 065
  123. ZOPICLONE [Suspect]
     Active Substance: ZOPICLONE
     Dosage: 1 DOSAGE FORM, QD
     Route: 065
  124. ZOPICLONE [Suspect]
     Active Substance: ZOPICLONE
     Dosage: 1 DOSAGE FORM, QD
     Route: 065
  125. ZOPICLONE [Suspect]
     Active Substance: ZOPICLONE
     Dosage: 1 DOSAGE FORM, QD
     Route: 065
  126. ZOPICLONE [Suspect]
     Active Substance: ZOPICLONE
     Route: 065
  127. ZOPICLONE [Suspect]
     Active Substance: ZOPICLONE
     Dosage: 1 DOSAGE FORM, QD
     Route: 065
  128. ZOPICLONE [Suspect]
     Active Substance: ZOPICLONE
     Dosage: 1 DOSAGE FORM, QD
     Route: 065
  129. ZOPICLONE [Suspect]
     Active Substance: ZOPICLONE
     Dosage: 1 DOSAGE FORM, QD
     Route: 065
  130. ZOPICLONE [Suspect]
     Active Substance: ZOPICLONE
     Dosage: 1 DOSAGE FORM, QD
     Route: 065
  131. ZOPICLONE [Suspect]
     Active Substance: ZOPICLONE
     Dosage: 1 DOSAGE FORM, QD
     Route: 065
  132. ZOPICLONE [Suspect]
     Active Substance: ZOPICLONE
     Dosage: 1 DOSAGE FORM, QD
     Route: 065
  133. ZOPICLONE [Suspect]
     Active Substance: ZOPICLONE
     Route: 065
  134. VENLAFAXINE HYDROCHLORIDE [Suspect]
     Active Substance: VENLAFAXINE HYDROCHLORIDE
     Indication: Product used for unknown indication
     Route: 065

REACTIONS (10)
  - Angioedema [Unknown]
  - Drug ineffective [Unknown]
  - Drug ineffective for unapproved indication [Unknown]
  - Drug intolerance [Unknown]
  - Dysphonia [Unknown]
  - Headache [Unknown]
  - Hypersensitivity [Unknown]
  - Off label use [Unknown]
  - Swelling face [Unknown]
  - Swollen tongue [Unknown]
